FAERS Safety Report 4874961-0 (Version None)
Quarter: 2006Q1

REPORT INFORMATION
  Report Type: 
  Country: None (occurrence: None)
  Receive Date: 20060109
  Receipt Date: 20051230
  Transmission Date: 20060701
  Serious: Yes (Other)
  Sender: FDA-Public Use
  Company Number: FR-AVENTIS-200610003FR

PATIENT
  Age: 20 Year
  Sex: Female

DRUGS (1)
  1. RIFAMPIN AND ISONIAZID [Suspect]
     Dosage: DOSE UNIT: UNITS
     Route: 048
     Dates: start: 20051201, end: 20051201

REACTIONS (3)
  - ANAPHYLACTIC REACTION [None]
  - BRONCHOSPASM [None]
  - HYPOTENSION [None]
